FAERS Safety Report 14944703 (Version 3)
Quarter: 2018Q2

REPORT INFORMATION
  Report Type: Spontaneous
  Country: DE (occurrence: DE)
  Receive Date: 20180529
  Receipt Date: 20180622
  Transmission Date: 20180711
  Serious: Yes (Hospitalization, Other)
  Sender: FDA-Public Use
  Company Number: DE-AMGEN-DEUSP2018071552

PATIENT
  Age: 62 Year
  Sex: Female

DRUGS (10)
  1. CALCIGEN D [Concomitant]
     Active Substance: CALCIUM CARBONATE\CHOLECALCIFEROL
     Dosage: UNK
  2. OMEPRAZOL [Concomitant]
     Active Substance: OMEPRAZOLE
     Dosage: UNK UNK, QD
  3. ENBREL [Suspect]
     Active Substance: ETANERCEPT
     Indication: PRODUCT USED FOR UNKNOWN INDICATION
     Dosage: 25 MG, 2 TIMES/WK
     Route: 065
     Dates: start: 20100310, end: 20171015
  4. ENBREL [Suspect]
     Active Substance: ETANERCEPT
     Dosage: 50 MG, QWK
     Route: 058
     Dates: start: 201111, end: 201406
  5. ENBREL [Suspect]
     Active Substance: ETANERCEPT
     Dosage: 50 MG, QWK
     Route: 065
     Dates: start: 201005, end: 20100914
  6. ENBREL [Suspect]
     Active Substance: ETANERCEPT
     Dosage: 50 MG, WEEKLY
     Route: 065
     Dates: start: 201010, end: 20110408
  7. OXYCODON [Concomitant]
     Active Substance: OXYCODONE
     Dosage: UNK
  8. ENBREL [Suspect]
     Active Substance: ETANERCEPT
     Dosage: 50 MG, QWK
     Route: 058
     Dates: end: 2017
  9. ENBREL [Suspect]
     Active Substance: ETANERCEPT
     Dosage: 50 MG, QWK
     Route: 058
     Dates: start: 20180531
  10. CELEBREX [Concomitant]
     Active Substance: CELECOXIB
     Dosage: UNK

REACTIONS (24)
  - Hypertension [Unknown]
  - Asthenia [Unknown]
  - Dyspnoea [Unknown]
  - Cough [Recovering/Resolving]
  - Eye disorder [Unknown]
  - Hypertension [Unknown]
  - Jaw disorder [Unknown]
  - Osteoarthritis [Unknown]
  - Gait disturbance [Unknown]
  - Pollakiuria [Unknown]
  - Skin fissures [Unknown]
  - Anxiety [Unknown]
  - Nasopharyngitis [Unknown]
  - Fall [Unknown]
  - Dyspnoea [Unknown]
  - Nausea [Unknown]
  - Tarsal tunnel syndrome [Unknown]
  - Autoimmune disorder [Unknown]
  - Tooth disorder [Unknown]
  - Skin disorder [Unknown]
  - Injection site erythema [Recovered/Resolved]
  - Tooth loss [Unknown]
  - Arthralgia [Recovering/Resolving]
  - Pancytopenia [Unknown]

NARRATIVE: CASE EVENT DATE: 20100320
